FAERS Safety Report 5170965-1 (Version None)
Quarter: 2006Q4

REPORT INFORMATION
  Report Type: 
  Country: None (occurrence: None)
  Receive Date: 20061213
  Receipt Date: 20061130
  Transmission Date: 20070319
  Serious: Yes (Life-Threatening)
  Sender: FDA-Public Use
  Company Number: US-NOVOPROD-258982

PATIENT
  Sex: Male
  Weight: 81.633 kg

DRUGS (16)
  1. NOVOLOG MIX 70/30 [Suspect]
     Indication: INSULIN-REQUIRING TYPE II DIABETES MELLITUS
     Dosage: UNKNOWN
     Route: 058
     Dates: start: 20000101, end: 20060914
  2. NOVOLIN R [Concomitant]
     Indication: INSULIN-REQUIRING TYPE II DIABETES MELLITUS
     Dosage: SLIDING SCALE
     Route: 058
     Dates: start: 19990101
  3. PLAVIX [Concomitant]
     Indication: CARDIAC DISORDER
     Route: 048
  4. ASPIRIN [Concomitant]
     Indication: PROPHYLAXIS
     Route: 048
  5. NEXIUM [Concomitant]
     Indication: GASTROOESOPHAGEAL REFLUX DISEASE
     Route: 048
  6. AMIODARONE HCL [Concomitant]
     Indication: CARDIAC DISORDER
     Route: 048
  7. FERROUS SULFATE TAB [Concomitant]
     Indication: RENAL DISORDER
     Route: 048
  8. LASIX [Concomitant]
     Indication: FLUID RETENTION
     Route: 048
  9. FLOMAX                             /00889901/ [Concomitant]
     Indication: PROSTATE CANCER
     Route: 048
  10. POTASSIUM                          /00031402/ [Concomitant]
     Indication: HYPOKALAEMIA
     Route: 048
  11. CALCIUM [Concomitant]
     Indication: PROPHYLAXIS
     Route: 048
  12. CENTRUM SILVER [Concomitant]
     Indication: PROPHYLAXIS
     Route: 048
  13. VITIRON [Concomitant]
     Indication: BLOOD CHOLESTEROL INCREASED
     Route: 048
  14. ZEMPLAR [Concomitant]
     Indication: RENAL DISORDER
     Route: 048
  15. MIACALCIN [Concomitant]
     Indication: OSTEOPOROSIS
     Route: 048
  16. COREG [Concomitant]
     Indication: HYPERTENSION
     Route: 048

REACTIONS (5)
  - BLOOD GLUCOSE INCREASED [None]
  - HEAT EXPOSURE INJURY [None]
  - LOSS OF CONSCIOUSNESS [None]
  - PNEUMONIA [None]
  - STRESS [None]
